FAERS Safety Report 23478070 (Version 1)
Quarter: 2024Q1

REPORT INFORMATION
  Report Type: Spontaneous
  Country: US (occurrence: US)
  Receive Date: 20240204
  Receipt Date: 20240204
  Transmission Date: 20240409
  Serious: Yes (Hospitalization)
  Sender: FDA-Public Use
  Company Number: US-STRIDES ARCOLAB LIMITED-2023SP011622

PATIENT

DRUGS (5)
  1. NYSTATIN [Suspect]
     Active Substance: NYSTATIN
     Indication: Thermal burn
     Dosage: UNK
     Route: 061
  2. SILVER SULFADIAZINE [Suspect]
     Active Substance: SILVER SULFADIAZINE
     Indication: Thermal burn
     Dosage: UNK
     Route: 065
  3. MAFENIDE ACETATE [Suspect]
     Active Substance: MAFENIDE ACETATE
     Indication: Thermal burn
     Dosage: UNK, CREAM
     Route: 065
  4. MAFENIDE ACETATE [Suspect]
     Active Substance: MAFENIDE ACETATE
     Dosage: UNK, SOLUTION, REDUCED
     Route: 065
  5. SILVER NITRATE [Suspect]
     Active Substance: SILVER NITRATE
     Indication: Thermal burn
     Dosage: UNK
     Route: 065

REACTIONS (1)
  - Drug ineffective for unapproved indication [Unknown]
